FAERS Safety Report 9461020 (Version 1)
Quarter: 2013Q3

REPORT INFORMATION
  Report Type: Spontaneous
  Country: US (occurrence: US)
  Receive Date: 20130816
  Receipt Date: 20130816
  Transmission Date: 20140515
  Serious: No
  Sender: FDA-Public Use
  Company Number: US-BIOGENIDEC-2013BI075612

PATIENT
  Age: 35 Year
  Sex: Female

DRUGS (1)
  1. TYSABRI [Suspect]
     Indication: MULTIPLE SCLEROSIS
     Route: 042
     Dates: start: 20130624

REACTIONS (18)
  - Wheezing [Unknown]
  - Pulmonary congestion [Unknown]
  - Migraine [Unknown]
  - Decreased appetite [Unknown]
  - Paraesthesia [Unknown]
  - Abdominal pain lower [Unknown]
  - Depression [Unknown]
  - Visual impairment [Unknown]
  - Confusional state [Unknown]
  - Dyslexia [Unknown]
  - Hypoaesthesia [Unknown]
  - Acute sinusitis [Unknown]
  - Bronchitis [Unknown]
  - Vomiting [Unknown]
  - Fatigue [Unknown]
  - Arthralgia [Unknown]
  - Nausea [Unknown]
  - Malaise [Unknown]
